FAERS Safety Report 25451543 (Version 2)
Quarter: 2025Q2

REPORT INFORMATION
  Report Type: Spontaneous
  Country: US (occurrence: US)
  Receive Date: 20250618
  Receipt Date: 20250624
  Transmission Date: 20250716
  Serious: No
  Sender: MERCK SHARP & DOHME LLC
  Company Number: US-009507513-2289040

PATIENT
  Sex: Female
  Weight: 158.76 kg

DRUGS (24)
  1. SOTATERCEPT [Suspect]
     Active Substance: SOTATERCEPT
     Indication: Product used for unknown indication
  2. TYVASO DPI [Suspect]
     Active Substance: TREPROSTINIL
     Indication: Pulmonary arterial hypertension
  3. TYVASO DPI [Suspect]
     Active Substance: TREPROSTINIL
     Indication: Pulmonary arterial hypertension
  4. DULOXETINE HYDROCHLORIDE [Concomitant]
     Active Substance: DULOXETINE HYDROCHLORIDE
  5. BUSPIRONE HCL [Concomitant]
     Active Substance: BUSPIRONE HYDROCHLORIDE
  6. FOLIC ACID [Concomitant]
     Active Substance: FOLIC ACID
  7. TIZANIDINE HYDROCHLORIDE [Concomitant]
     Active Substance: TIZANIDINE HYDROCHLORIDE
  8. LORAZEPAM [Concomitant]
     Active Substance: LORAZEPAM
  9. POTASSIUM CHLORIDE [Concomitant]
     Active Substance: POTASSIUM CHLORIDE
  10. ELIQUIS [Concomitant]
     Active Substance: APIXABAN
  11. HYDROXYCHLOROQUINE SULFATE [Concomitant]
     Active Substance: HYDROXYCHLOROQUINE SULFATE
  12. PREGABALIN [Concomitant]
     Active Substance: PREGABALIN
  13. TADALAFIL [Concomitant]
     Active Substance: TADALAFIL
  14. OPSUMIT [Concomitant]
     Active Substance: MACITENTAN
  15. PREVACID [Concomitant]
     Active Substance: LANSOPRAZOLE
  16. METHOTREXATE [Concomitant]
     Active Substance: METHOTREXATE
  17. OXYGEN [Concomitant]
     Active Substance: OXYGEN
  18. DAPAGLIFLOZIN [Concomitant]
     Active Substance: DAPAGLIFLOZIN
  19. MORPHINE SULFATE [Concomitant]
     Active Substance: MORPHINE SULFATE
  20. SPIRONOLACTONE [Concomitant]
     Active Substance: SPIRONOLACTONE
  21. CETIRIZINE HCL [Concomitant]
     Active Substance: CETIRIZINE HYDROCHLORIDE
  22. TRAZODONE HCL [Concomitant]
     Active Substance: TRAZODONE HYDROCHLORIDE
  23. TORSEMIDE [Concomitant]
     Active Substance: TORSEMIDE
  24. OXYCODONE AND ACETAMINOPHEN [Concomitant]
     Active Substance: ACETAMINOPHEN\OXYCODONE HYDROCHLORIDE

REACTIONS (1)
  - Haemoglobin increased [Unknown]
